FAERS Safety Report 17936262 (Version 1)
Quarter: 2020Q2

REPORT INFORMATION
  Report Type: Spontaneous
  Country: US (occurrence: US)
  Receive Date: 20200624
  Receipt Date: 20200624
  Transmission Date: 20200714
  Serious: No
  Sender: FDA-Public Use
  Company Number: None

PATIENT
  Age: 64 Year
  Sex: Male
  Weight: 78.3 kg

DRUGS (12)
  1. ENOXAPARIN [Concomitant]
     Active Substance: ENOXAPARIN
     Dates: start: 20200613, end: 20200619
  2. FAMOTIDINE. [Concomitant]
     Active Substance: FAMOTIDINE
     Dates: start: 20200613, end: 20200619
  3. NOREPINEPHRINE. [Concomitant]
     Active Substance: NOREPINEPHRINE
     Dates: start: 20200619, end: 20200621
  4. REMDESIVIR. [Suspect]
     Active Substance: REMDESIVIR
     Indication: COVID-19
     Route: 040
  5. SENNA-DOCUSATE [Concomitant]
     Active Substance: DOCUSATE SODIUM\SENNOSIDES
     Dates: start: 20200613, end: 20200621
  6. PROPOFOL. [Concomitant]
     Active Substance: PROPOFOL
     Dates: start: 20200612, end: 20200621
  7. ACETAMINOPHEN. [Concomitant]
     Active Substance: ACETAMINOPHEN
     Dates: start: 20200612, end: 20200621
  8. HEPARIN [Concomitant]
     Active Substance: HEPARIN SODIUM
     Dates: start: 20200619, end: 20200621
  9. ATRACURIUM [Concomitant]
     Active Substance: ATRACURIUM
     Dates: start: 20200617, end: 20200621
  10. LISPRO [Concomitant]
     Active Substance: INSULIN LISPRO
     Dates: start: 20200617, end: 20200620
  11. POLYETHYLENE GLYCOL [Concomitant]
     Active Substance: POLYETHYLENE GLYCOLS
     Dates: start: 20200613, end: 20200621
  12. HYDROMORPHONE [Concomitant]
     Active Substance: HYDROMORPHONE
     Dates: start: 20200612, end: 20200621

REACTIONS (5)
  - Respiratory failure [None]
  - Haemodialysis [None]
  - Blood creatinine increased [None]
  - Glomerular filtration rate increased [None]
  - Acute kidney injury [None]

NARRATIVE: CASE EVENT DATE: 20200619
